FAERS Safety Report 18122050 (Version 1)
Quarter: 2020Q3

REPORT INFORMATION
  Report Type: Spontaneous
  Country: CN (occurrence: CN)
  Receive Date: 20200807
  Receipt Date: 20200807
  Transmission Date: 20201103
  Serious: Yes (Other)
  Sender: FDA-Public Use
  Company Number: CN-SPECGX-T202001419

PATIENT
  Age: 28 Year
  Sex: Male
  Weight: 75 kg

DRUGS (1)
  1. OXYCODONE/ACETAMINOPHEN [Suspect]
     Active Substance: ACETAMINOPHEN\OXYCODONE HYDROCHLORIDE
     Indication: POSTOPERATIVE ANALGESIA
     Dosage: 1 DOSAGE FORM, QD
     Route: 048
     Dates: start: 20200719, end: 20200719

REACTIONS (6)
  - Pruritus [Recovering/Resolving]
  - Macule [Recovering/Resolving]
  - Dysphagia [Recovering/Resolving]
  - Pharyngeal swelling [Recovering/Resolving]
  - Oropharyngeal pain [Recovering/Resolving]
  - Dysphonia [Recovering/Resolving]

NARRATIVE: CASE EVENT DATE: 20200719
